FAERS Safety Report 9138284 (Version 2)
Quarter: 2013Q1

REPORT INFORMATION
  Report Type: Spontaneous
  Country: US (occurrence: US)
  Receive Date: 20130305
  Receipt Date: 20130312
  Transmission Date: 20140127
  Serious: No
  Sender: FDA-Public Use
  Company Number: US-009507513-1302USA013667

PATIENT
  Age: 75 Year
  Sex: Female

DRUGS (1)
  1. DULERA [Suspect]
     Indication: PULMONARY OEDEMA
     Dosage: TWO PUFFS TWICE DAILY
     Route: 055

REACTIONS (3)
  - Wheezing [Not Recovered/Not Resolved]
  - Drug dose omission [Unknown]
  - Product quality issue [Unknown]
